FAERS Safety Report 18536544 (Version 2)
Quarter: 2020Q4

REPORT INFORMATION
  Report Type: Spontaneous
  Country: US (occurrence: US)
  Receive Date: 20201123
  Receipt Date: 20201201
  Transmission Date: 20210114
  Serious: No
  Sender: FDA-Public Use
  Company Number: US-GILEAD-2020-0504704

PATIENT
  Age: 62 Year
  Sex: Male
  Weight: 66.67 kg

DRUGS (1)
  1. EPCLUSA [Suspect]
     Active Substance: SOFOSBUVIR\VELPATASVIR
     Indication: HEPATITIS C
     Dosage: 1 DOSAGE FORM (400/100 MG), QD
     Route: 048
     Dates: start: 20200205

REACTIONS (5)
  - Wrong technique in product usage process [Unknown]
  - Off label use [Unknown]
  - Intentional dose omission [Unknown]
  - Treatment noncompliance [Unknown]
  - Incorrect dose administered [Unknown]
